FAERS Safety Report 10794675 (Version 2)
Quarter: 2015Q1

REPORT INFORMATION
  Report Type: Report from Study
  Country: US (occurrence: US)
  Receive Date: 20150213
  Receipt Date: 20150215
  Transmission Date: 20150721
  Serious: Yes (Hospitalization, Other)
  Sender: FDA-Public Use
  Company Number: PHHY2015US016854

PATIENT
  Age: 56 Year
  Sex: Male
  Weight: 131 kg

DRUGS (9)
  1. TACROLIMUS. [Suspect]
     Active Substance: TACROLIMUS
     Indication: RENAL TRANSPLANT
     Dosage: 5 MG, BID
     Route: 048
     Dates: start: 20130911
  2. SIMULECT [Suspect]
     Active Substance: BASILIXIMAB
     Indication: IMMUNOSUPPRESSION
  3. LABETALOL [Concomitant]
     Active Substance: LABETALOL\LABETALOL HYDROCHLORIDE
     Indication: PRODUCT USED FOR UNKNOWN INDICATION
     Dosage: UNK
     Route: 065
  4. MYCOPHENOLATE MOFETIL. [Suspect]
     Active Substance: MYCOPHENOLATE MOFETIL
     Indication: RENAL TRANSPLANT
     Dosage: 750 MG, BID
     Route: 048
     Dates: start: 20130911
  5. WARFARIN [Concomitant]
     Active Substance: WARFARIN
     Indication: PRODUCT USED FOR UNKNOWN INDICATION
     Dosage: UNK
     Route: 065
     Dates: start: 20131216
  6. SIMULECT [Suspect]
     Active Substance: BASILIXIMAB
     Indication: RENAL TRANSPLANT
     Dosage: 20 MG, TWICE ON DAYS 1 AND 4
     Route: 042
     Dates: start: 20130911, end: 20130914
  7. PREDNISONE. [Concomitant]
     Active Substance: PREDNISONE
     Indication: PRODUCT USED FOR UNKNOWN INDICATION
     Dosage: UNK
     Route: 065
     Dates: start: 20130915
  8. MYCOPHENOLATE MOFETIL. [Suspect]
     Active Substance: MYCOPHENOLATE MOFETIL
     Indication: IMMUNOSUPPRESSION
  9. TACROLIMUS. [Suspect]
     Active Substance: TACROLIMUS
     Indication: IMMUNOSUPPRESSION

REACTIONS (12)
  - Fluid overload [Unknown]
  - Effusion [Unknown]
  - Cardiac failure congestive [Unknown]
  - Atrial fibrillation [Unknown]
  - Pulmonary oedema [Recovering/Resolving]
  - Pulmonary congestion [Recovering/Resolving]
  - Chest pain [Not Recovered/Not Resolved]
  - Mitral valve incompetence [Unknown]
  - Dyspnoea [Not Recovered/Not Resolved]
  - Cardiomegaly [Unknown]
  - Aortic valve stenosis [Unknown]
  - Aortic valve incompetence [Unknown]

NARRATIVE: CASE EVENT DATE: 20141224
